FAERS Safety Report 12329823 (Version 1)
Quarter: 2016Q2

REPORT INFORMATION
  Report Type: Spontaneous
  Country: CA (occurrence: CA)
  Receive Date: 20160503
  Receipt Date: 20160503
  Transmission Date: 20160815
  Serious: Yes (Death, Hospitalization)
  Sender: FDA-Public Use
  Company Number: PHHY2016CA058800

PATIENT
  Age: 53 Year
  Sex: Female

DRUGS (1)
  1. GILENYA [Suspect]
     Active Substance: FINGOLIMOD HYDROCHLORIDE
     Indication: MULTIPLE SCLEROSIS
     Dosage: UNK
     Route: 065

REACTIONS (9)
  - Concomitant disease aggravated [Fatal]
  - Confusional state [Fatal]
  - Epilepsy [Fatal]
  - Gait disturbance [Fatal]
  - Hallucination, visual [Fatal]
  - Stupor [Fatal]
  - Coma [Fatal]
  - Mental status changes [Fatal]
  - Encephalitis autoimmune [Fatal]
